FAERS Safety Report 8021026-5 (Version None)
Quarter: 2011Q4

REPORT INFORMATION
  Report Type: 
  Country: None (occurrence: None)
  Receive Date: 20111229
  Receipt Date: 20111215
  Transmission Date: 20120403
  Serious: Yes (Other)
  Sender: FDA-Public Use
  Company Number: 1144540

PATIENT
  Age: 52 Year
  Sex: Female
  Weight: 64.1 kg

DRUGS (3)
  1. PACLITAXEL [Suspect]
     Indication: BREAST CANCER METASTATIC
  2. HERCEPTIN [Suspect]
     Indication: BREAST CANCER METASTATIC
  3. ZOLEDRONIC ACID [Suspect]
     Indication: METASTASES TO BONE
     Dosage: INTRAVENOUS (NOT OTHERWISE SPECIFIED)

REACTIONS (1)
  - FEMUR FRACTURE [None]
